FAERS Safety Report 6520742-1 (Version None)
Quarter: 2009Q4

REPORT INFORMATION
  Report Type: 
  Country: None (occurrence: None)
  Receive Date: 20091229
  Receipt Date: 20091223
  Transmission Date: 20100525
  Serious: Yes (Other)
  Sender: FDA-Public Use
  Company Number: GXKR2009JP13015

PATIENT
  Age: 74 Year
  Sex: Female

DRUGS (5)
  1. DEXAMETHASONE [Suspect]
     Dosage: 20 MG, UNK
     Route: 042
  2. DEXAMETHASONE [Suspect]
     Dosage: 8 MG
     Route: 042
  3. TAXOL [Concomitant]
     Dosage: 60 MG/M2 ON DAYS 1, 8 AND 15
     Route: 065
     Dates: start: 20061201
  4. ZANTAC [Concomitant]
     Dosage: 50 MG, UNK
     Route: 041
  5. DIPHENHYDRAMINE HCL [Concomitant]
     Dosage: 50 MG, UNK
     Route: 048

REACTIONS (10)
  - ALOPECIA [None]
  - ALTERED STATE OF CONSCIOUSNESS [None]
  - ANAPHYLACTOID REACTION [None]
  - BLOOD PRESSURE DECREASED [None]
  - COLD SWEAT [None]
  - CONVULSION [None]
  - COUGH [None]
  - FAECAL INCONTINENCE [None]
  - NAUSEA [None]
  - PALLOR [None]
